FAERS Safety Report 7150127-9 (Version None)
Quarter: 2010Q4

REPORT INFORMATION
  Report Type: 
  Country: None (occurrence: None)
  Receive Date: 20101207
  Receipt Date: 20101207
  Transmission Date: 20110411
  Serious: Yes (Other)
  Sender: FDA-Public Use
  Company Number: None

PATIENT
  Age: 47 Year
  Sex: Male
  Weight: 68.0396 kg

DRUGS (1)
  1. OXYCONTIN [Suspect]
     Indication: PAIN
     Dosage: 1 TABLET 12 HOURS PO
     Route: 048

REACTIONS (3)
  - NO THERAPEUTIC RESPONSE [None]
  - PRODUCT SHAPE ISSUE [None]
  - PRODUCT SUBSTITUTION ISSUE [None]
